FAERS Safety Report 7770179-2 (Version None)
Quarter: 2011Q3

REPORT INFORMATION
  Report Type: 
  Country: None (occurrence: None)
  Receive Date: 20110922
  Receipt Date: 20100928
  Transmission Date: 20111222
  Serious: No
  Sender: FDA-Public Use
  Company Number: US-ASTRAZENECA-2010SE37117

PATIENT
  Age: 47 Year
  Sex: Female
  Weight: 61.2 kg

DRUGS (14)
  1. SEROQUEL XR [Suspect]
     Indication: BIPOLAR DISORDER
     Route: 048
     Dates: start: 20020101
  2. SEROQUEL XR [Suspect]
     Route: 048
  3. SEROQUEL XR [Suspect]
     Route: 048
     Dates: start: 20100101
  4. SEROQUEL XR [Suspect]
     Route: 048
  5. SEROQUEL XR [Suspect]
     Route: 048
     Dates: start: 20080101, end: 20100601
  6. CELEXA [Concomitant]
     Route: 048
  7. XANAX [Concomitant]
     Route: 048
  8. SEROQUEL XR [Suspect]
     Route: 048
  9. SEROQUEL XR [Suspect]
     Route: 048
     Dates: start: 20100101
  10. SEROQUEL XR [Suspect]
     Route: 048
     Dates: start: 20100101
  11. SEROQUEL XR [Suspect]
     Indication: SLEEP DISORDER
     Route: 048
     Dates: start: 20020101
  12. SEROQUEL XR [Suspect]
     Indication: OBSESSIVE-COMPULSIVE DISORDER
     Route: 048
     Dates: start: 20020101
  13. SEROQUEL XR [Suspect]
     Route: 048
     Dates: start: 20080101, end: 20100601
  14. SEROQUEL XR [Suspect]
     Route: 048
     Dates: start: 20080101, end: 20100601

REACTIONS (8)
  - DRUG DOSE OMISSION [None]
  - PANIC ATTACK [None]
  - WRONG TECHNIQUE IN DRUG USAGE PROCESS [None]
  - AGITATION [None]
  - TACHYPHRENIA [None]
  - COMPULSIONS [None]
  - WRONG DRUG ADMINISTERED [None]
  - INSOMNIA [None]
